FAERS Safety Report 14708018 (Version 1)
Quarter: 2018Q2

REPORT INFORMATION
  Report Type: Spontaneous
  Country: US (occurrence: US)
  Receive Date: 20180403
  Receipt Date: 20180403
  Transmission Date: 20180711
  Serious: No
  Sender: FDA-Public Use
  Company Number: US-PFIZER INC-2018130769

PATIENT
  Age: 66 Year
  Sex: Female
  Weight: 120.18 kg

DRUGS (3)
  1. ACIDOPHILUS PROBIOTIC [Concomitant]
     Dosage: UNK
  2. NIACIN. [Concomitant]
     Active Substance: NIACIN
     Dosage: 500 MG, UNK
  3. XELJANZ [Suspect]
     Active Substance: TOFACITINIB CITRATE
     Dosage: 5 MG, 2X/DAY
     Route: 048

REACTIONS (2)
  - Malaise [Recovering/Resolving]
  - Fatigue [Recovering/Resolving]
